FAERS Safety Report 7994626-6 (Version None)
Quarter: 2011Q4

REPORT INFORMATION
  Report Type: 
  Country: None (occurrence: None)
  Receive Date: 20111217
  Receipt Date: 20111217
  Transmission Date: 20120403
  Serious: No
  Sender: FDA-Public Use
  Company Number: None

PATIENT

DRUGS (2)
  1. ERIBULIN [Suspect]
  2. EPIRUBICIN [Suspect]

REACTIONS (3)
  - MEDICATION ERROR [None]
  - DRUG NAME CONFUSION [None]
  - INTERCEPTED DRUG DISPENSING ERROR [None]
